FAERS Safety Report 8306690-5 (Version None)
Quarter: 2012Q2

REPORT INFORMATION
  Report Type: 
  Country: None (occurrence: None)
  Receive Date: 20120424
  Receipt Date: 20120417
  Transmission Date: 20120825
  Serious: Yes (Hospitalization)
  Sender: FDA-Public Use
  Company Number: US-BAYER-2012-038676

PATIENT
  Age: 45 Year
  Sex: Female

DRUGS (11)
  1. HUMALOG [Concomitant]
     Dosage: 55 UNITS/DAY
     Route: 058
  2. PROVIGIL [Concomitant]
     Dosage: 200 MG, QD
     Route: 048
  3. PAXIL [Concomitant]
     Dosage: UNK
     Dates: start: 20070609
  4. ZOCOR [Concomitant]
  5. PRILOSEC [Concomitant]
     Dosage: UNK
     Dates: start: 20070609
  6. M.V.I. [Concomitant]
     Dosage: UNK
     Dates: start: 20070609
  7. ZETIA [Concomitant]
  8. AVELOX [Concomitant]
     Indication: PERIRECTAL ABSCESS
     Dosage: UNK
     Dates: start: 20070305
  9. YASMIN [Suspect]
  10. COZAAR [Concomitant]
     Dosage: 50 MG, QD
     Route: 048
  11. FLAGYL [Concomitant]
     Indication: PERIRECTAL ABSCESS
     Dosage: UNK
     Dates: start: 20070305

REACTIONS (1)
  - PERIPHERAL EMBOLISM [None]
